FAERS Safety Report 15711160 (Version 1)
Quarter: 2018Q4

REPORT INFORMATION
  Report Type: Spontaneous
  Country: DE (occurrence: DE)
  Receive Date: 20181211
  Receipt Date: 20181211
  Transmission Date: 20190205
  Serious: Yes (Other)
  Sender: FDA-Public Use
  Company Number: DE-SA-2018SA321892

PATIENT
  Age: 39 Year
  Sex: Female

DRUGS (5)
  1. VENLOFEX [Concomitant]
     Indication: DEPRESSION
     Dosage: 75 MG, QD
     Route: 048
     Dates: start: 201806
  2. METOHEXAL [METOPROLOL SUCCINATE] [Concomitant]
     Dosage: 15 MG, QD
     Dates: start: 201806
  3. ASPIRIN. [Concomitant]
     Active Substance: ASPIRIN
     Dosage: 100 MG, QD
     Route: 048
     Dates: start: 201806
  4. AUBAGIO [Suspect]
     Active Substance: TERIFLUNOMIDE
     Indication: ENCEPHALOMYELITIS
     Dosage: 14 MG, QD
     Route: 048
     Dates: start: 20180920
  5. SIMVASTATIN. [Concomitant]
     Active Substance: SIMVASTATIN
     Indication: HYPERCHOLESTEROLAEMIA
     Dosage: 40 MG, QD
     Route: 048

REACTIONS (7)
  - Phonophobia [Recovered/Resolved]
  - Hemiplegia [Recovered/Resolved]
  - Nausea [Recovered/Resolved]
  - Migraine [Recovered/Resolved]
  - Photosensitivity reaction [Recovered/Resolved]
  - Multiple sclerosis relapse [Recovered/Resolved]
  - Fatigue [Recovered/Resolved]

NARRATIVE: CASE EVENT DATE: 20181118
